FAERS Safety Report 4811941-5 (Version None)
Quarter: 2005Q4

REPORT INFORMATION
  Report Type: 
  Country: None (occurrence: None)
  Receive Date: 20051028
  Receipt Date: 20051005
  Transmission Date: 20060501
  Serious: Yes (Other)
  Sender: FDA-Public Use
  Company Number: 2005AP05274

PATIENT
  Age: 62 Year
  Sex: Female

DRUGS (3)
  1. DIPRIVAN [Suspect]
     Indication: ANAESTHESIA
     Route: 042
     Dates: start: 20050620
  2. BUPRENORPHINE [Concomitant]
     Indication: ANAESTHESIA
  3. VECURONIUM BROMIDE [Concomitant]
     Indication: ANAESTHESIA

REACTIONS (2)
  - CARDIOMYOPATHY [None]
  - PROCEDURAL HYPOTENSION [None]
